FAERS Safety Report 5353929-4 (Version None)
Quarter: 2007Q2

REPORT INFORMATION
  Report Type: 
  Country: None (occurrence: None)
  Receive Date: 20070608
  Receipt Date: 20070608
  Transmission Date: 20071010
  Serious: Yes (Death)
  Sender: FDA-Public Use
  Company Number: None

PATIENT
  Age: 84 Year
  Sex: Male
  Weight: 68.0396 kg

DRUGS (1)
  1. ALLOPURINOL [Suspect]
     Dates: start: 20070301, end: 20070420

REACTIONS (3)
  - DIALYSIS [None]
  - RENAL FAILURE [None]
  - STEVENS-JOHNSON SYNDROME [None]
